FAERS Safety Report 7902285-3 (Version None)
Quarter: 2011Q4

REPORT INFORMATION
  Report Type: 
  Country: None (occurrence: None)
  Receive Date: 20111108
  Receipt Date: 20111102
  Transmission Date: 20120403
  Serious: Yes (Other)
  Sender: FDA-Public Use
  Company Number: FR-ABBOTT-11P-056-0871046-00

PATIENT
  Sex: Male

DRUGS (5)
  1. RITONAVIR [Suspect]
     Indication: HIV INFECTION
     Route: 048
     Dates: start: 20110708
  2. TRUVADA [Suspect]
     Indication: HIV INFECTION
     Route: 048
     Dates: start: 20110708, end: 20110920
  3. REYATAZ [Suspect]
     Indication: HIV INFECTION
     Route: 048
     Dates: start: 20110708, end: 20110809
  4. PREZISTA [Suspect]
     Indication: HIV INFECTION
     Route: 048
     Dates: start: 20110809, end: 20110920
  5. LEVOTHYROXINE SODIUM [Concomitant]
     Indication: HYPOTHYROIDISM
     Dates: start: 20000101

REACTIONS (9)
  - FLATULENCE [None]
  - TENDONITIS [None]
  - NAUSEA [None]
  - SYNOVIAL CYST [None]
  - TENOSYNOVITIS [None]
  - DRUG INTOLERANCE [None]
  - OCULAR ICTERUS [None]
  - VERTIGO [None]
  - SLEEP DISORDER [None]
